FAERS Safety Report 4773877-8 (Version None)
Quarter: 2005Q3

REPORT INFORMATION
  Report Type: 
  Country: None (occurrence: None)
  Receive Date: 20050919
  Receipt Date: 20050902
  Transmission Date: 20060218
  Serious: Yes (Other)
  Sender: FDA-Public Use
  Company Number: 12274

PATIENT
  Sex: Female

DRUGS (7)
  1. METHOTREXATE [Suspect]
     Dosage: NI
  2. APROVEL [Concomitant]
  3. ASPIRIN [Concomitant]
  4. FUROSEMIDE [Concomitant]
  5. LIPITOR [Concomitant]
  6. METOPROLOL [Concomitant]
  7. NOVOMIX [Concomitant]

REACTIONS (1)
  - RENAL DISORDER [None]
